FAERS Safety Report 10449297 (Version 1)
Quarter: 2014Q3

REPORT INFORMATION
  Report Type: Spontaneous
  Country: US (occurrence: US)
  Receive Date: 20140912
  Receipt Date: 20140912
  Transmission Date: 20150326
  Serious: Yes (Other)
  Sender: FDA-Public Use
  Company Number: PHEH2014US017552

PATIENT
  Sex: Female

DRUGS (1)
  1. EXJADE [Suspect]
     Active Substance: DEFERASIROX
     Indication: IRON OVERLOAD
     Dosage: UNK, DAILY
     Dates: end: 201401

REACTIONS (3)
  - Tenderness [Recovered/Resolved]
  - Vision blurred [Recovered/Resolved]
  - Lymph node palpable [Recovered/Resolved]
